FAERS Safety Report 8495191-X (Version None)
Quarter: 2012Q3

REPORT INFORMATION
  Report Type: 
  Country: None (occurrence: None)
  Receive Date: 20120709
  Receipt Date: 20120615
  Transmission Date: 20120928
  Serious: Yes (Hospitalization)
  Sender: FDA-Public Use
  Company Number: DK-PFIZER INC-2012145760

PATIENT
  Age: 36 Year
  Sex: Female

DRUGS (2)
  1. GENOTROPIN [Suspect]
     Indication: SUPPLEMENTATION THERAPY
     Dosage: UNK
     Dates: start: 20010101, end: 20120301
  2. LEVOTHYROXINE SODIUM [Suspect]
     Indication: SUPPLEMENTATION THERAPY
     Dosage: UNK
     Route: 048
     Dates: start: 20010101

REACTIONS (1)
  - FOETAL DEATH [None]
